FAERS Safety Report 17058021 (Version 1)
Quarter: 2019Q4

REPORT INFORMATION
  Report Type: Spontaneous
  Country: US (occurrence: US)
  Receive Date: 20191023
  Receipt Date: 20191023
  Transmission Date: 20200122
  Serious: No
  Sender: FDA-Public Use
  Company Number: None

PATIENT
  Age: 60 Year
  Sex: Female

DRUGS (1)
  1. CAPECITABINE. [Suspect]
     Active Substance: CAPECITABINE
     Indication: BREAST CANCER
     Dates: start: 20190326

REACTIONS (4)
  - Tongue disorder [None]
  - Product substitution issue [None]
  - Sinusitis [None]
  - Skin exfoliation [None]

NARRATIVE: CASE EVENT DATE: 20190916
